FAERS Safety Report 18726955 (Version 2)
Quarter: 2021Q2

REPORT INFORMATION
  Report Type: Spontaneous
  Country: CN (occurrence: CN)
  Receive Date: 20210111
  Receipt Date: 20210409
  Transmission Date: 20210717
  Serious: No
  Sender: FDA-Public Use
  Company Number: CN-VALIDUS PHARMACEUTICALS LLC-CN-2021VAL000023

PATIENT

DRUGS (7)
  1. CALCIUM CARBONATE W/COLECALCIFEROL [Concomitant]
     Active Substance: CALCIUM CARBONATE\CHOLECALCIFEROL
     Indication: OSTEOPOROSIS POSTMENOPAUSAL
     Dosage: 1 DF, QD (1 DOSAGE FORM, 1 IN 1 D)
     Route: 048
     Dates: start: 2014
  2. CALCIUM CARBONATE W/COLECALCIFEROL [Concomitant]
     Active Substance: CALCIUM CARBONATE\CHOLECALCIFEROL
     Dosage: (2 DOSAGE FORMS)
     Route: 048
     Dates: start: 202009
  3. ROCALTROL [Suspect]
     Active Substance: CALCITRIOL
     Dosage: (2 DOSAGE FORMS)
     Route: 048
     Dates: start: 2020
  4. ROCALTROL [Suspect]
     Active Substance: CALCITRIOL
     Indication: OSTEOPOROSIS POSTMENOPAUSAL
     Dosage: 1 DF=1 CAPSULE, PER DAY (1 DOSAGE FORMS,1 IN 1 D)
     Route: 048
     Dates: start: 2014
  5. CALCIUM CARBONATE W/COLECALCIFEROL [Concomitant]
     Active Substance: CALCIUM CARBONATE\CHOLECALCIFEROL
     Dosage: 2 DOSAGE FORMS (2 DOSAGE FORMS,1 IN 1 D)
     Route: 048
     Dates: start: 201708, end: 202009
  6. ZOLEDRONIC ACID [Concomitant]
     Active Substance: ZOLEDRONIC ACID
     Indication: OSTEOPOROSIS POSTMENOPAUSAL
     Dosage: UNK
     Route: 065
     Dates: start: 202007
  7. ROCALTROL [Suspect]
     Active Substance: CALCITRIOL
     Dosage: (2 DOSAGE FORMS,1)
     Route: 048
     Dates: start: 201708, end: 202009

REACTIONS (6)
  - Vasospasm [Unknown]
  - Carotid arteriosclerosis [Unknown]
  - Arthralgia [Unknown]
  - Muscle spasms [Unknown]
  - Peripheral arterial occlusive disease [Unknown]
  - Weight decreased [Unknown]
